FAERS Safety Report 17090607 (Version 2)
Quarter: 2019Q4

REPORT INFORMATION
  Report Type: Report from Study
  Country: DE (occurrence: DE)
  Receive Date: 20191129
  Receipt Date: 20191209
  Transmission Date: 20200122
  Serious: Yes (Hospitalization)
  Sender: FDA-Public Use
  Company Number: DE-ROCHE-2477954

PATIENT
  Age: 61 Year
  Sex: Male
  Weight: 106 kg

DRUGS (11)
  1. ACALABRUTINIB. [Suspect]
     Active Substance: ACALABRUTINIB
     Indication: CHRONIC LYMPHOCYTIC LEUKAEMIA
     Dosage: ON 14/NOV/2019, HE RECEIVED MOST RECENT DOSE OF ACALABRUTINIB 200 MG PRIOR TO EVENT ONSET
     Route: 048
     Dates: start: 20190704
  2. ASPIRIN. [Concomitant]
     Active Substance: ASPIRIN
     Route: 048
     Dates: start: 20150614
  3. METFORMIN [Concomitant]
     Active Substance: METFORMIN HYDROCHLORIDE
     Route: 048
     Dates: start: 20160914
  4. COTRIM FORTE [Concomitant]
     Active Substance: SULFAMETHOXAZOLE\TRIMETHOPRIM
     Route: 048
     Dates: start: 20190607
  5. VENETOCLAX. [Suspect]
     Active Substance: VENETOCLAX
     Indication: CHRONIC LYMPHOCYTIC LEUKAEMIA
     Dosage: ON 14/NOV/2019, HE RECEIVED MOST RECENT DOSE OF VENETOCLAX 400 MG PRIOR TO EVENT ONSET
     Route: 048
     Dates: start: 20190801
  6. GAVISCON DOUBLE ACTION [Concomitant]
     Route: 048
     Dates: start: 20190715
  7. BETAGALEN [Concomitant]
     Route: 065
     Dates: start: 20191004
  8. PRAVASTATIN. [Concomitant]
     Active Substance: PRAVASTATIN
     Route: 048
     Dates: start: 20190620
  9. OBINUTUZUMAB. [Suspect]
     Active Substance: OBINUTUZUMAB
     Indication: CHRONIC LYMPHOCYTIC LEUKAEMIA
     Dosage: ON 24/OCT/2019, HE RECEIVED MOST RECENT DOSE OF OBINUTUZUMAB 1000 MG PRIOR TO EVENT ONSET
     Route: 042
     Dates: start: 20190606
  10. TELMISARTAN. [Concomitant]
     Active Substance: TELMISARTAN
     Route: 048
     Dates: start: 20180108
  11. RANITIC [Concomitant]
     Active Substance: RANITIDINE HYDROCHLORIDE
     Route: 048
     Dates: start: 20190715

REACTIONS (1)
  - Facial nerve disorder [Recovered/Resolved]

NARRATIVE: CASE EVENT DATE: 20191111
